FAERS Safety Report 5725510-6 (Version None)
Quarter: 2008Q2

REPORT INFORMATION
  Report Type: 
  Country: None (occurrence: None)
  Receive Date: 20080501
  Receipt Date: 20080421
  Transmission Date: 20081010
  Serious: Yes (Other)
  Sender: FDA-Public Use
  Company Number: ES-JNJFOC-20080407454

PATIENT
  Age: 38 Year
  Sex: Male

DRUGS (1)
  1. ADOLANTA [Suspect]
     Indication: PAIN
     Route: 048

REACTIONS (3)
  - CONJUNCTIVITIS [None]
  - LARYNGEAL OEDEMA [None]
  - RASH [None]
